FAERS Safety Report 10258622 (Version 3)
Quarter: 2014Q3

REPORT INFORMATION
  Report Type: Report from Study
  Country: JP (occurrence: JP)
  Receive Date: 20140625
  Receipt Date: 20140707
  Transmission Date: 20150326
  Serious: Yes (Other)
  Sender: FDA-Public Use
  Company Number: JP-BRISTOL-MYERS SQUIBB COMPANY-19886571

PATIENT
  Age: 77 Year
  Sex: Female
  Weight: 45.2 kg

DRUGS (4)
  1. MAGMITT [Concomitant]
     Active Substance: MAGNESIUM OXIDE
     Dates: start: 20130426
  2. BROTIZOLAM [Suspect]
     Active Substance: BROTIZOLAM
     Indication: BIPOLAR DISORDER
     Dosage: ORODISPERSIBLE TABLET
     Route: 048
     Dates: start: 20130426
  3. LEVOTOMIN [Suspect]
     Active Substance: LEVOMEPROMAZINE
     Indication: BIPOLAR DISORDER
     Dosage: 15MG=11MAY13 TO ONG
     Route: 048
     Dates: start: 20130508, end: 20130510
  4. ABILIFY [Suspect]
     Active Substance: ARIPIPRAZOLE
     Indication: BIPOLAR DISORDER
     Dosage: 18MG=07FEB TO 17FEB14?12MG=18FEB14 TO ONG
     Route: 048
     Dates: start: 20130426, end: 20140206

REACTIONS (3)
  - Dyskinesia [Not Recovered/Not Resolved]
  - Haemangioma [Recovered/Resolved]
  - Weight increased [Recovered/Resolved]

NARRATIVE: CASE EVENT DATE: 20131005
